FAERS Safety Report 7174466-0 (Version None)
Quarter: 2010Q4

REPORT INFORMATION
  Report Type: 
  Country: None (occurrence: None)
  Receive Date: 20101219
  Receipt Date: 20100329
  Transmission Date: 20110411
  Serious: No
  Sender: FDA-Public Use
  Company Number: US-AMGEN-KDL402829

PATIENT

DRUGS (1)
  1. ENBREL [Suspect]
     Indication: PSORIATIC ARTHROPATHY
     Dosage: 50 MG, QWK
     Route: 058
     Dates: start: 20060501

REACTIONS (5)
  - ARTHRALGIA [None]
  - BACK PAIN [None]
  - FALL [None]
  - OEDEMA PERIPHERAL [None]
  - PAIN IN EXTREMITY [None]
